FAERS Safety Report 9127249 (Version 1)
Quarter: 2013Q1

REPORT INFORMATION
  Report Type: Spontaneous
  Country: FR (occurrence: FR)
  Receive Date: 20130228
  Receipt Date: 20130228
  Transmission Date: 20140127
  Serious: Yes (Hospitalization)
  Sender: FDA-Public Use
  Company Number: FR-SANOFI-AVENTIS-2013SA017059

PATIENT
  Age: 91 Year
  Sex: Female

DRUGS (8)
  1. KAYEXALATE [Suspect]
     Indication: HYPERKALAEMIA
     Route: 048
     Dates: start: 20121130, end: 20121207
  2. LASILIX [Suspect]
     Indication: PRODUCT USED FOR UNKNOWN INDICATION
     Route: 048
     Dates: end: 20121221
  3. AMIODARONE [Concomitant]
     Route: 048
  4. METFORMIN [Concomitant]
     Route: 048
  5. CLOPIDOGREL BESYLATE [Concomitant]
     Route: 048
  6. ALDACTONE [Concomitant]
     Route: 048
  7. RAMIPRIL [Concomitant]
     Route: 048
  8. RISPERIDONE [Concomitant]
     Route: 048

REACTIONS (4)
  - Dyspnoea [Recovered/Resolved]
  - Oedema peripheral [Recovered/Resolved]
  - Cardiac failure [Recovered/Resolved]
  - Hypokalaemia [Recovered/Resolved]
